FAERS Safety Report 5740185-8 (Version None)
Quarter: 2008Q2

REPORT INFORMATION
  Report Type: 
  Country: None (occurrence: None)
  Receive Date: 20080516
  Receipt Date: 20080505
  Transmission Date: 20081010
  Serious: Yes (Hospitalization, Other)
  Sender: FDA-Public Use
  Company Number: HQWYE936810OCT05

PATIENT
  Sex: Female
  Weight: 88.53 kg

DRUGS (1)
  1. PREMPRO [Suspect]
     Dosage: UNKNOWN
     Route: 048
     Dates: start: 19950101, end: 20020101

REACTIONS (4)
  - BREAST CALCIFICATIONS [None]
  - BREAST CANCER [None]
  - BREAST HYPERPLASIA [None]
  - FIBROCYSTIC BREAST DISEASE [None]
